FAERS Safety Report 5097227-5 (Version None)
Quarter: 2006Q3

REPORT INFORMATION
  Report Type: 
  Country: None (occurrence: None)
  Receive Date: 20060906
  Receipt Date: 20050519
  Transmission Date: 20061208
  Serious: Yes (Other)
  Sender: FDA-Public Use
  Company Number: PHEH2005US05719

PATIENT
  Age: 42 Year
  Sex: Male

DRUGS (1)
  1. ZOMETA [Suspect]
     Indication: MULTIPLE MYELOMA
     Dosage: 4 MG MONTHLY
     Route: 042

REACTIONS (15)
  - ALVEOLOPLASTY [None]
  - ANXIETY [None]
  - BONE DEBRIDEMENT [None]
  - BONE DISORDER [None]
  - DECREASED INTEREST [None]
  - DENTAL CARIES [None]
  - DENTAL OPERATION [None]
  - DENTAL TREATMENT [None]
  - GENERAL PHYSICAL HEALTH DETERIORATION [None]
  - ORAL SOFT TISSUE DISORDER [None]
  - OSTEOMYELITIS [None]
  - OSTEONECROSIS [None]
  - PAIN IN JAW [None]
  - PERIODONTITIS [None]
  - TOOTH EXTRACTION [None]
